FAERS Safety Report 12317053 (Version 2)
Quarter: 2016Q2

REPORT INFORMATION
  Report Type: Spontaneous
  Country: HU (occurrence: HU)
  Receive Date: 20160429
  Receipt Date: 20160513
  Transmission Date: 20160815
  Serious: Yes (Other)
  Sender: FDA-Public Use
  Company Number: HU-AMGEN-HUNSP2016053921

PATIENT
  Age: 63 Year
  Sex: Male
  Weight: 89 kg

DRUGS (7)
  1. SYNCUMAR [Concomitant]
     Active Substance: ACENOCOUMAROL
     Dosage: UNK
  2. TRITACE [Concomitant]
     Active Substance: RAMIPRIL
     Dosage: UNK
  3. KALIUM-R [Concomitant]
     Dosage: UNK
  4. PROCORALAN [Suspect]
     Active Substance: IVABRADINE
     Indication: ANGINA PECTORIS
     Dosage: 2.5 MG, SINGLE
     Route: 048
     Dates: start: 20160418, end: 20160418
  5. NOACID                             /00069401/ [Concomitant]
     Dosage: UNK
  6. FUROSEMIDE. [Concomitant]
     Active Substance: FUROSEMIDE
     Dosage: UNK
  7. CIPROFLOXACIN HYDROCHLORIDE. [Concomitant]
     Active Substance: CIPROFLOXACIN HYDROCHLORIDE
     Dosage: 500 MG, DAILY
     Dates: start: 20160418

REACTIONS (3)
  - Electrocardiogram PQ interval prolonged [Recovered/Resolved]
  - Underdose [Recovered/Resolved]
  - Atrioventricular block first degree [Recovered/Resolved]

NARRATIVE: CASE EVENT DATE: 20160418
